FAERS Safety Report 9341536 (Version 1)
Quarter: 2013Q2

REPORT INFORMATION
  Report Type: Spontaneous
  Country: CH (occurrence: CH)
  Receive Date: 20130604
  Receipt Date: 20130604
  Transmission Date: 20140414
  Serious: Yes (Hospitalization, Other)
  Sender: FDA-Public Use
  Company Number: 2013036284

PATIENT
  Age: 4 Year
  Sex: Male

DRUGS (9)
  1. PRIVIGEN [Suspect]
     Indication: IDIOPATHIC THROMBOCYTOPENIC PURPURA
     Route: 041
     Dates: start: 20130208, end: 20130209
  2. PRIVIGEN [Suspect]
     Indication: GUILLAIN-BARRE SYNDROME
     Route: 041
     Dates: start: 20130208, end: 20130209
  3. DAFALGAN [Suspect]
     Dosage: DOSAGE DURATION: 4 WEEKS AND 2 DAYS.
     Route: 048
     Dates: start: 20130320, end: 20130418
  4. RIVOTRIL (CLONAZEPAM) [Suspect]
     Indication: PAIN
     Route: 048
     Dates: start: 20130329, end: 20130418
  5. GABAPENTINE [Suspect]
     Indication: PAIN
     Route: 048
     Dates: start: 20130320
  6. CIRCADIN [Suspect]
     Indication: SLEEP DISORDER
     Route: 048
     Dates: start: 20130301
  7. VITAMIN D (ERGOCALCIFEROL) [Concomitant]
  8. VITAMIN B (VITAMIN B) [Concomitant]
  9. VITAMIN B1 (THIAMINE HYDROCHLORIDE) [Concomitant]

REACTIONS (4)
  - Suspected transmission of an infectious agent via product [None]
  - Hepatocellular injury [None]
  - Hepatitis viral [None]
  - Neutropenia [None]
